FAERS Safety Report 9581236 (Version 2)
Quarter: 2013Q4

REPORT INFORMATION
  Report Type: Spontaneous
  Country: GB (occurrence: GB)
  Receive Date: 20131002
  Receipt Date: 20131002
  Transmission Date: 20140711
  Serious: Yes (Life-Threatening, Hospitalization)
  Sender: FDA-Public Use
  Company Number: PHHY2012GB108644

PATIENT
  Age: 60 Year
  Sex: Female
  Weight: 102 kg

DRUGS (13)
  1. METHOTREXATE [Suspect]
     Indication: RHEUMATOID ARTHRITIS
     Dosage: 25 MG, QW
     Route: 058
     Dates: start: 200806, end: 20111104
  2. TOCILIZUMAB [Suspect]
     Indication: RHEUMATOID ARTHRITIS
     Dosage: 8 MG/KG
     Route: 042
     Dates: start: 20110304, end: 20121104
  3. LEFLUNOMIDE [Concomitant]
  4. PREDNISOLONE [Concomitant]
  5. FOLIC ACID [Concomitant]
     Dosage: 5 MG QD
     Route: 048
  6. TRAMADOL [Concomitant]
  7. LANSOPRAZOLE [Concomitant]
     Dosage: 15 MG QD
     Route: 048
  8. ALENDRONIC ACID [Concomitant]
     Dosage: 70 MG QW (TAKE ON SATURDAYS)
     Route: 048
  9. CITALOPRAM [Concomitant]
     Dosage: 20 MG QD
     Route: 048
  10. CETIRIZINE [Concomitant]
  11. PERINDOPRIL [Concomitant]
     Dosage: 8 MG QD
     Route: 048
  12. ETODOLAC [Concomitant]
     Dosage: 600 MG QD
     Route: 048
  13. SULPHASALAZINE [Concomitant]

REACTIONS (6)
  - Alveolitis allergic [Recovering/Resolving]
  - Dyspnoea exertional [Not Recovered/Not Resolved]
  - Dyspnoea [Unknown]
  - Cough [Unknown]
  - Abdominal pain [Unknown]
  - Vomiting [Unknown]
